FAERS Safety Report 9498915 (Version 1)
Quarter: 2013Q3

REPORT INFORMATION
  Report Type: Spontaneous
  Country: US (occurrence: US)
  Receive Date: 20130904
  Receipt Date: 20130904
  Transmission Date: 20140515
  Serious: Yes (Death)
  Sender: FDA-Public Use
  Company Number: CHPA2013US013671

PATIENT
  Age: 69 Year
  Sex: Male

DRUGS (2)
  1. ASCRIPTIN BUFFERED CAPS UNKNOWN FORMULA [Suspect]
     Indication: HEADACHE
     Dosage: 2 DF, PRN
     Route: 048
  2. WATER PILLS [Concomitant]
     Indication: URINE ABNORMALITY
     Dosage: UNK, UNK

REACTIONS (1)
  - Hepatic cancer [Fatal]
